FAERS Safety Report 21960703 (Version 2)
Quarter: 2023Q1

REPORT INFORMATION
  Report Type: Report from Study
  Country: US (occurrence: US)
  Receive Date: 20230207
  Receipt Date: 20230303
  Transmission Date: 20230417
  Serious: Yes (Hospitalization)
  Sender: FDA-Public Use
  Company Number: US-002147023-NVSC2023US022016

PATIENT
  Sex: Female

DRUGS (2)
  1. ENTRESTO [Suspect]
     Active Substance: SACUBITRIL\VALSARTAN
     Indication: Product used for unknown indication
     Dosage: UNK UNK, BID (ABOUT 3.5 YEARS AGO)
     Route: 048
  2. CYMBALTA [Suspect]
     Active Substance: DULOXETINE HYDROCHLORIDE
     Indication: Product used for unknown indication
     Dosage: UNK
     Route: 065

REACTIONS (7)
  - Respiratory tract infection [Unknown]
  - Blood creatinine abnormal [Unknown]
  - Blood urea abnormal [Unknown]
  - Glomerular filtration rate abnormal [Unknown]
  - Dehydration [Unknown]
  - Pollakiuria [Unknown]
  - Hypotension [Unknown]
